FAERS Safety Report 23758910 (Version 1)
Quarter: 2024Q2

REPORT INFORMATION
  Report Type: Spontaneous
  Country: US (occurrence: None)
  Receive Date: 20240418
  Receipt Date: 20240418
  Transmission Date: 20240715
  Serious: No
  Sender: FDA-Public Use
  Company Number: US-ROCHE-3397149

PATIENT

DRUGS (2)
  1. AVASTIN [Suspect]
     Active Substance: BEVACIZUMAB
     Indication: Diabetic retinal oedema
     Route: 065
  2. LUCENTIS [Suspect]
     Active Substance: RANIBIZUMAB
     Indication: Diabetic retinopathy
     Route: 065

REACTIONS (5)
  - Off label use [Unknown]
  - Eye haemorrhage [Unknown]
  - Weight decreased [Unknown]
  - Eye disorder [Unknown]
  - Blood glucose increased [Unknown]
